FAERS Safety Report 8132970-2 (Version None)
Quarter: 2012Q1

REPORT INFORMATION
  Report Type: 
  Country: None (occurrence: None)
  Receive Date: 20120103
  Receipt Date: 20110922
  Transmission Date: 20120608
  Serious: No
  Sender: FDA-Public Use
  Company Number: AE-2011-001749

PATIENT
  Age: 50 Year
  Sex: Male

DRUGS (6)
  1. INCIVEK [Suspect]
     Dosage: 2250 MG (750 MG, 3 IN 1 D),ORAL
     Route: 048
     Dates: start: 20110815
  2. RIBAVIRIN [Concomitant]
  3. GLUCOPHAGE [Concomitant]
  4. PEGASYS [Concomitant]
  5. LISINOPRIL [Concomitant]
  6. KLONOPIN [Concomitant]

REACTIONS (4)
  - HOT FLUSH [None]
  - HEADACHE [None]
  - DYSPHAGIA [None]
  - CHILLS [None]
